FAERS Safety Report 8049120-3 (Version None)
Quarter: 2012Q1

REPORT INFORMATION
  Report Type: 
  Country: None (occurrence: None)
  Receive Date: 20120117
  Receipt Date: 20120110
  Transmission Date: 20120608
  Serious: Yes (Hospitalization)
  Sender: FDA-Public Use
  Company Number: US-SANOFI-AVENTIS-2011SA051861

PATIENT
  Age: 83 Year
  Sex: Female

DRUGS (4)
  1. PLAVIX [Suspect]
     Route: 065
  2. ASPIRIN [Suspect]
     Dosage: {100MG
     Route: 065
  3. COUMADIN [Suspect]
     Route: 065
  4. BLINDED THERAPY [Suspect]

REACTIONS (3)
  - ANGIOPATHY [None]
  - LOWER GASTROINTESTINAL HAEMORRHAGE [None]
  - RECTAL HAEMORRHAGE [None]
